FAERS Safety Report 19752595 (Version 6)
Quarter: 2023Q1

REPORT INFORMATION
  Report Type: Other
  Country: JP (occurrence: JP)
  Receive Date: 20210827
  Receipt Date: 20230302
  Transmission Date: 20230418
  Serious: Yes (Death, Hospitalization, Disabling)
  Sender: FDA-Public Use
  Company Number: JP-CHUGAI-A2021003094ROCHE

PATIENT
  Age: 72 Year
  Sex: Male
  Weight: 46.1 kg

DRUGS (4)
  1. SATRALIZUMAB [Suspect]
     Active Substance: SATRALIZUMAB
     Indication: Neuromyelitis optica spectrum disorder
     Route: 058
     Dates: start: 20210107, end: 20210204
  2. SATRALIZUMAB [Suspect]
     Active Substance: SATRALIZUMAB
     Route: 058
     Dates: start: 20210304, end: 20220331
  3. SATRALIZUMAB [Suspect]
     Active Substance: SATRALIZUMAB
     Dosage: MOST RECENT DOSE : APR/2022
     Route: 058
  4. PREDONINE [Concomitant]
     Active Substance: PREDNISOLONE
     Indication: Neuromyelitis optica spectrum disorder
     Dosage: 10MG/DAY
     Route: 048
     Dates: start: 20200515, end: 20220427

REACTIONS (7)
  - Lung neoplasm malignant [Fatal]
  - Spinal compression fracture [Fatal]
  - Metastases to liver [Fatal]
  - Metastases to bone [Unknown]
  - Urinary tract infection [Recovered/Resolved]
  - Blood albumin decreased [Not Recovered/Not Resolved]
  - Hepatic function abnormal [Recovered/Resolved]

NARRATIVE: CASE EVENT DATE: 20210107
